FAERS Safety Report 11656656 (Version 1)
Quarter: 2015Q4

REPORT INFORMATION
  Report Type: Spontaneous
  Country: US (occurrence: US)
  Receive Date: 20151023
  Receipt Date: 20151023
  Transmission Date: 20160304
  Serious: Yes (Other)
  Sender: FDA-Public Use
  Company Number: US-BAYER-2015-446545

PATIENT
  Age: 58 Year

DRUGS (1)
  1. CIPRO [Suspect]
     Active Substance: CIPROFLOXACIN HYDROCHLORIDE
     Indication: DIVERTICULITIS
     Dosage: UNK
     Dates: start: 201406

REACTIONS (4)
  - General physical health deterioration [None]
  - Impaired work ability [None]
  - Fear [None]
  - Anhedonia [None]
